FAERS Safety Report 6467015-3 (Version None)
Quarter: 2009Q4

REPORT INFORMATION
  Report Type: 
  Country: None (occurrence: None)
  Receive Date: 20091127
  Receipt Date: 20091116
  Transmission Date: 20100525
  Serious: Yes (Death)
  Sender: FDA-Public Use
  Company Number: 2009AC000420

PATIENT
  Age: 76 Year
  Sex: Female

DRUGS (13)
  1. DIGOXIN [Suspect]
     Dosage: .125 MG; QD; PO
     Route: 048
  2. DIGOXIN [Suspect]
     Dosage: .125 MG; QD; PO
     Route: 048
  3. *ELITE [Concomitant]
  4. EVISTA [Concomitant]
  5. OXAZEPAM [Concomitant]
  6. GLUCOPHAGE [Concomitant]
  7. LASIX [Concomitant]
  8. PREVACID [Concomitant]
  9. VITAMIN D [Concomitant]
  10. PRINIVIL [Concomitant]
  11. LANTUS [Concomitant]
  12. HYDROCHLOROTHIAZIDE [Concomitant]
  13. COUMADIN [Concomitant]

REACTIONS (13)
  - ANXIETY [None]
  - ATRIAL FIBRILLATION [None]
  - DIABETES MELLITUS [None]
  - ECHOCARDIOGRAM ABNORMAL [None]
  - FATIGUE [None]
  - HYPERLIPIDAEMIA [None]
  - HYPERTENSION [None]
  - IRRITABLE BOWEL SYNDROME [None]
  - OSTEOARTHRITIS [None]
  - PAIN [None]
  - PEPTIC ULCER [None]
  - PERICARDIAL EFFUSION [None]
  - THERAPEUTIC AGENT TOXICITY [None]
